FAERS Safety Report 21297033 (Version 1)
Quarter: 2022Q3

REPORT INFORMATION
  Report Type: Spontaneous
  Country: DE (occurrence: DE)
  Receive Date: 20220906
  Receipt Date: 20220906
  Transmission Date: 20221026
  Serious: Yes (Other)
  Sender: FDA-Public Use
  Company Number: None

PATIENT
  Age: 90 Year
  Sex: Female
  Weight: 70 kg

DRUGS (9)
  1. SULFAMETHOXAZOLE\TRIMETHOPRIM [Suspect]
     Active Substance: SULFAMETHOXAZOLE\TRIMETHOPRIM
     Indication: Urinary tract infection
     Dosage: 960MG 2X DAILY FIRST APPLICATION, COTRIM FORTE-RATIOPHARM 800 MG/160 MG TABLETS, UNIT DOSE: 2 DF, FR
     Dates: start: 20220712, end: 20220715
  2. SULFAMETHOXAZOLE\TRIMETHOPRIM [Suspect]
     Active Substance: SULFAMETHOXAZOLE\TRIMETHOPRIM
     Indication: Cystitis
  3. CANDESARTAN [Concomitant]
     Active Substance: CANDESARTAN
     Indication: Product used for unknown indication
  4. ELIQUIS [Concomitant]
     Active Substance: APIXABAN
     Indication: Product used for unknown indication
  5. CLOMIPRAMINE [Concomitant]
     Active Substance: CLOMIPRAMINE
     Indication: Product used for unknown indication
  6. EUTHYROX [Concomitant]
     Active Substance: LEVOTHYROXINE SODIUM
     Indication: Product used for unknown indication
  7. AMIODARONE [Concomitant]
     Active Substance: AMIODARONE
     Indication: Product used for unknown indication
  8. TORSEMIDE [Concomitant]
     Active Substance: TORSEMIDE
     Indication: Product used for unknown indication
  9. SIMVASTATIN [Concomitant]
     Active Substance: SIMVASTATIN
     Indication: Product used for unknown indication

REACTIONS (2)
  - Paralysis [Recovered/Resolved]
  - Ataxia [Recovered/Resolved]

NARRATIVE: CASE EVENT DATE: 20220713
